FAERS Safety Report 8943601 (Version 2)
Quarter: 2013Q3

REPORT INFORMATION
  Report Type: Spontaneous
  Country: FR (occurrence: FR)
  Receive Date: 20121204
  Receipt Date: 20130827
  Transmission Date: 20140515
  Serious: Yes (Other)
  Sender: FDA-Public Use
  Company Number: FR-009507513-1211FRA012734

PATIENT
  Age: 48 Year
  Sex: Female

DRUGS (15)
  1. EMEND [Suspect]
     Route: 048
  2. FLUOROURACIL [Concomitant]
     Indication: BREAST CANCER METASTATIC
     Dosage: 745 MG, ONCE
     Route: 042
     Dates: start: 20120824
  3. FLUOROURACIL [Concomitant]
     Dosage: 650 MG, ONCE
     Route: 042
     Dates: start: 20120925
  4. FLUOROURACIL [Concomitant]
     Dosage: 685 MG, ONCE
     Route: 042
     Dates: start: 20121016
  5. FLUOROURACIL [Concomitant]
     Dosage: 745 MG, ONCE
     Route: 042
     Dates: start: 20121106
  6. EPIRUBICIN HYDROCHLORIDE [Concomitant]
     Indication: BREAST CANCER METASTATIC
     Dosage: 150 MG, ONCE
     Route: 042
     Dates: start: 20120824
  7. EPIRUBICIN HYDROCHLORIDE [Concomitant]
     Dosage: 130 MG, ONCE
     Route: 042
     Dates: start: 20120925
  8. EPIRUBICIN HYDROCHLORIDE [Concomitant]
     Dosage: 135 MG, ONCE
     Route: 042
     Dates: start: 20121016
  9. EPIRUBICIN HYDROCHLORIDE [Concomitant]
     Dosage: 130 MG, ONCE
     Dates: start: 20121106
  10. CYCLOPHOSPHAMIDE [Concomitant]
     Indication: BREAST CANCER METASTATIC
     Dosage: 745 MG, ONCE
     Route: 042
  11. CYCLOPHOSPHAMIDE [Concomitant]
     Dosage: 650 MG, ONCE
     Route: 042
  12. CYCLOPHOSPHAMIDE [Concomitant]
     Dosage: 685 MG, ONCE
     Route: 042
  13. CYCLOPHOSPHAMIDE [Concomitant]
     Dosage: 745 MG, ONCE
     Route: 042
     Dates: start: 20121106
  14. SOLU-MEDROL [Concomitant]
  15. ZOPHREN (ONDANSETRON HYDROCHLORIDE) [Concomitant]

REACTIONS (2)
  - Hepatocellular injury [Recovered/Resolved]
  - Cholestasis [Recovered/Resolved]
